FAERS Safety Report 22400120 (Version 1)
Quarter: 2023Q2

REPORT INFORMATION
  Report Type: Spontaneous
  Country: US (occurrence: None)
  Receive Date: 20230601
  Receipt Date: 20230601
  Transmission Date: 20230722
  Serious: Yes (Hospitalization)
  Sender: FDA-Public Use
  Company Number: None

PATIENT
  Age: 64 Year
  Sex: Male
  Weight: 83.7 kg

DRUGS (3)
  1. ROCURONIUM [Suspect]
     Active Substance: ROCURONIUM BROMIDE
     Indication: Endotracheal intubation
     Dosage: OTHER FREQUENCY : ONCE;?
     Route: 040
     Dates: start: 20230410, end: 20230410
  2. FENTANYL [Suspect]
     Active Substance: FENTANYL
     Indication: Dyspnoea
     Dosage: OTHER FREQUENCY : EVERY 30 MINS PRN;?
     Route: 042
     Dates: start: 20230410, end: 20230410
  3. FENTANYL [Suspect]
     Active Substance: FENTANYL
     Indication: Pain

REACTIONS (5)
  - Respiratory failure [None]
  - Myasthenia gravis [None]
  - Gastrointestinal haemorrhage [None]
  - Oxygen saturation decreased [None]
  - Lethargy [None]

NARRATIVE: CASE EVENT DATE: 20230410
